FAERS Safety Report 9499506 (Version 2)
Quarter: 2013Q4

REPORT INFORMATION
  Report Type: Spontaneous
  Country: US (occurrence: US)
  Receive Date: 20130905
  Receipt Date: 20131126
  Transmission Date: 20140711
  Serious: Yes (Death, Hospitalization)
  Sender: FDA-Public Use
  Company Number: US-BRISTOL-MYERS SQUIBB COMPANY-19231497

PATIENT
  Age: 70 Year
  Sex: Male

DRUGS (1)
  1. YERVOY [Suspect]
     Indication: METASTATIC MALIGNANT MELANOMA
     Dosage: 2 DOSES=12JUL13,2AUG13.?INTERRUPTED ON:19AUG13.?INJ.
     Route: 042
     Dates: start: 20130712

REACTIONS (8)
  - Death [Fatal]
  - Enterocolitis [Unknown]
  - Hypotension [Unknown]
  - Oedema [Unknown]
  - Dehydration [Unknown]
  - Rash [Unknown]
  - Dyspnoea [Unknown]
  - Blood albumin decreased [Unknown]
